FAERS Safety Report 11100233 (Version 1)
Quarter: 2015Q2

REPORT INFORMATION
  Report Type: Spontaneous
  Country: US (occurrence: None)
  Receive Date: 20150507
  Receipt Date: 20150507
  Transmission Date: 20150821
  Serious: Yes (Hospitalization)
  Sender: FDA-Public Use
  Company Number: None

PATIENT
  Age: 34 Year
  Sex: Female
  Weight: 40.82 kg

DRUGS (6)
  1. IBUPROFEN. [Concomitant]
     Active Substance: IBUPROFEN
  2. LAMOTRIGINE. [Suspect]
     Active Substance: LAMOTRIGINE
     Indication: EPILEPSY
     Dosage: 1PILL/DAY FOR 2WKS, 2/DAY 2WKS ONCE DAILY TAKEN BY MOUTH
     Route: 048
     Dates: start: 20150224, end: 20150323
  3. RANITIDINE [Concomitant]
     Active Substance: RANITIDINE\RANITIDINE HYDROCHLORIDE
  4. CLOBETASOL PROPIONATE OINTMENT [Concomitant]
  5. TRIAMCINOLONE ACETONIDE CREAM [Concomitant]
     Active Substance: TRIAMCINOLONE ACETONIDE
  6. FISH OIL [Concomitant]
     Active Substance: FISH OIL

REACTIONS (18)
  - Anger [None]
  - Syncope [None]
  - Blister [None]
  - Rash pruritic [None]
  - Vulvovaginal mycotic infection [None]
  - Oral candidiasis [None]
  - Pharyngitis streptococcal [None]
  - Lymphadenopathy [None]
  - Oropharyngeal pain [None]
  - Pain [None]
  - Drug hypersensitivity [None]
  - Erythema [None]
  - Swelling [None]
  - Type IV hypersensitivity reaction [None]
  - Somnolence [None]
  - Oral mucosal exfoliation [None]
  - Swelling face [None]
  - Vaginal exfoliation [None]

NARRATIVE: CASE EVENT DATE: 20150327
